FAERS Safety Report 5148439-3 (Version None)
Quarter: 2006Q4

REPORT INFORMATION
  Report Type: 
  Country: None (occurrence: None)
  Receive Date: 20061110
  Receipt Date: 20061012
  Transmission Date: 20070319
  Serious: Yes (Other)
  Sender: FDA-Public Use
  Company Number: BE-MERCK-0610BEL00031

PATIENT
  Age: 71 Year
  Sex: Female

DRUGS (3)
  1. ZETIA [Suspect]
     Indication: HYPERCHOLESTEROLAEMIA
     Route: 048
     Dates: start: 20040801, end: 20040801
  2. ATENOLOL [Concomitant]
     Indication: HYPERTENSION
     Route: 048
  3. INDAPAMIDE [Concomitant]
     Indication: HYPERTENSION
     Route: 048

REACTIONS (2)
  - GASTROINTESTINAL DISORDER [None]
  - MYOCARDIAL INFARCTION [None]
